FAERS Safety Report 8255856-1 (Version None)
Quarter: 2012Q1

REPORT INFORMATION
  Report Type: 
  Country: None (occurrence: None)
  Receive Date: 20120329
  Receipt Date: 20120315
  Transmission Date: 20120608
  Serious: Yes (Life-Threatening, Hospitalization)
  Sender: FDA-Public Use
  Company Number: 2012S1000330

PATIENT
  Age: 66 Year
  Sex: Female

DRUGS (5)
  1. ALIPZA (PITAVASTATIN) [Suspect]
     Indication: DYSLIPIDAEMIA
     Dosage: 1 MG; 1X; PO
     Route: 048
     Dates: start: 20111102, end: 20111124
  2. LOVIBON (NEBIVOLOL HYDROCHLORIDE) [Suspect]
     Indication: HYPERTENSION
     Dosage: 5 MG; 1X; PO
     Route: 048
     Dates: start: 20111102, end: 20111124
  3. OLMESARTAN MEDOXOMIL [Concomitant]
  4. ASPIRIN [Concomitant]
  5. CHIROMAS [Concomitant]

REACTIONS (5)
  - RHABDOMYOLYSIS [None]
  - DYSPNOEA [None]
  - BRONCHOSPASM [None]
  - BLOOD CREATININE INCREASED [None]
  - RESPIRATORY FAILURE [None]
